FAERS Safety Report 6996822-3 (Version None)
Quarter: 2010Q3

REPORT INFORMATION
  Report Type: 
  Country: None (occurrence: None)
  Receive Date: 20100918
  Receipt Date: 20090714
  Transmission Date: 20110219
  Serious: No
  Sender: FDA-Public Use
  Company Number: US-WYE-H10157109

PATIENT
  Sex: Female
  Weight: 51.76 kg

DRUGS (3)
  1. PREMPRO [Suspect]
     Indication: HOT FLUSH
     Route: 048
     Dates: start: 20060101
  2. PREMPRO [Suspect]
     Indication: OSTEOPENIA
  3. IBUPROFEN [Concomitant]

REACTIONS (4)
  - AGGRESSION [None]
  - BREAST ENLARGEMENT [None]
  - IRRITABILITY [None]
  - SOMNOLENCE [None]
